FAERS Safety Report 21396977 (Version 1)
Quarter: 2022Q3

REPORT INFORMATION
  Report Type: Spontaneous
  Country: US (occurrence: US)
  Receive Date: 20220930
  Receipt Date: 20220930
  Transmission Date: 20221027
  Serious: No
  Sender: FDA-Public Use
  Company Number: US-PFIZER INC-PV202200073223

PATIENT
  Age: 50 Year

DRUGS (2)
  1. XELJANZ XR [Suspect]
     Active Substance: TOFACITINIB CITRATE
     Dosage: 11 MG, 1X/DAY
     Route: 048
  2. ENBREL [Suspect]
     Active Substance: ETANERCEPT

REACTIONS (3)
  - Therapeutic product effect incomplete [Unknown]
  - Musculoskeletal stiffness [Unknown]
  - Pain [Unknown]
